FAERS Safety Report 7531605-7 (Version None)
Quarter: 2011Q2

REPORT INFORMATION
  Report Type: 
  Country: None (occurrence: None)
  Receive Date: 20110607
  Receipt Date: 20110607
  Transmission Date: 20111010
  Serious: No
  Sender: FDA-Public Use
  Company Number: None

PATIENT
  Sex: Female
  Weight: 90.7194 kg

DRUGS (2)
  1. PROTONIX [Suspect]
  2. PANTOPRAZOLE [Suspect]
     Indication: GASTROOESOPHAGEAL REFLUX DISEASE
     Dosage: 1 TABLET 1 TIME A DAY PO
     Route: 048
     Dates: start: 20110525, end: 20110605

REACTIONS (6)
  - HEART RATE INCREASED [None]
  - HEADACHE [None]
  - PRODUCT SUBSTITUTION ISSUE [None]
  - DYSPEPSIA [None]
  - DRUG INEFFECTIVE [None]
  - FATIGUE [None]
